FAERS Safety Report 11493125 (Version 1)
Quarter: 2015Q3

REPORT INFORMATION
  Report Type: Spontaneous
  Country: US (occurrence: None)
  Receive Date: 20150910
  Receipt Date: 20150910
  Transmission Date: 20151125
  Serious: Yes (Disabling)
  Sender: FDA-Public Use
  Company Number: None

PATIENT
  Age: 66 Year
  Sex: Male
  Weight: 72.58 kg

DRUGS (6)
  1. FINASTERIDE. [Concomitant]
     Active Substance: FINASTERIDE
  2. TAMSULOSIN 4MG VA OPC [Suspect]
     Active Substance: TAMSULOSIN
     Indication: MICTURITION DISORDER
     Dosage: 1 ONCE DAILY --?OVER A YEAR.
  3. OXYTOCIN CHLORIDE [Concomitant]
  4. LIPID [Concomitant]
  5. LISINOPRIL. [Concomitant]
     Active Substance: LISINOPRIL
  6. VITAMIN D [Concomitant]
     Active Substance: CHOLECALCIFEROL

REACTIONS (2)
  - Glomerular filtration rate decreased [None]
  - Drug effect decreased [None]
